FAERS Safety Report 4716946-0 (Version None)
Quarter: 2005Q3

REPORT INFORMATION
  Report Type: 
  Country: None (occurrence: None)
  Receive Date: 20050712
  Receipt Date: 20050106
  Transmission Date: 20060218
  Serious: Yes (Other)
  Sender: FDA-Public Use
  Company Number: PHEH2004US12653

PATIENT
  Age: 46 Year
  Sex: Female

DRUGS (5)
  1. GLEEVEC [Suspect]
     Indication: GASTROINTESTINAL STROMAL TUMOUR
     Dosage: 400 MG, QD, ORAL
     Route: 048
     Dates: start: 20031218, end: 20041104
  2. GLEEVEC [Suspect]
     Indication: GASTROINTESTINAL STROMAL TUMOUR
     Dosage: 400 MG, QD, ORAL
     Route: 048
     Dates: start: 20041129
  3. ALDACTONE [Concomitant]
     Dosage: 25 MG, QD, ORAL
     Route: 048
     Dates: start: 20040901, end: 20041101
  4. DYAZIDE [Concomitant]
  5. POTASSIUM CHLORIDE [Concomitant]

REACTIONS (3)
  - FACE OEDEMA [None]
  - HEPATIC ENZYME INCREASED [None]
  - HYPOKALAEMIA [None]
